FAERS Safety Report 16559738 (Version 1)
Quarter: 2019Q3

REPORT INFORMATION
  Report Type: Spontaneous
  Country: US (occurrence: US)
  Receive Date: 20190711
  Receipt Date: 20190711
  Transmission Date: 20191004
  Serious: No
  Sender: FDA-Public Use
  Company Number: US-AUROBINDO-AUR-APL-2019-019492

PATIENT

DRUGS (4)
  1. LORAZEPAM TABLETS USP 0.5 MG [Suspect]
     Active Substance: LORAZEPAM
     Dosage: UNK, 01 TABLET PER DAY IN THE MORNING
     Route: 065
     Dates: start: 20190328, end: 20190329
  2. IRBESARTAN. [Concomitant]
     Active Substance: IRBESARTAN
     Indication: BLOOD PRESSURE MEASUREMENT
     Dosage: 300 MILLIGRAM
     Route: 065
  3. LORAZEPAM TABLETS USP 0.5 MG [Suspect]
     Active Substance: LORAZEPAM
     Indication: ANXIETY
     Dosage: UNK, ONCE A DAY AT BED TIME 09 O^CLOCK
     Route: 065
     Dates: end: 20190327
  4. LORAZEPAM TABLETS USP 0.5 MG [Suspect]
     Active Substance: LORAZEPAM
     Dosage: UNK, ONCE A DAY AT BED TIME 09 O^CLOCK
     Route: 065
     Dates: start: 20190330

REACTIONS (1)
  - Hypoaesthesia [Recovering/Resolving]
